FAERS Safety Report 8455003-7 (Version None)
Quarter: 2012Q2

REPORT INFORMATION
  Report Type: 
  Country: None (occurrence: None)
  Receive Date: 20120621
  Receipt Date: 20120608
  Transmission Date: 20120825
  Serious: Yes (Hospitalization, Other)
  Sender: FDA-Public Use
  Company Number: US-PFIZER INC-2012143690

PATIENT
  Sex: Female
  Weight: 70 kg

DRUGS (26)
  1. CATAPRES-TTS-1 [Concomitant]
     Indication: HYPERTENSION
     Dosage: 0.3 MG, WEEKLY
     Route: 062
     Dates: start: 20100124, end: 20100223
  2. AMBIEN [Concomitant]
     Dosage: 10 MG, 1X/DAY, AT BEDTIME
     Route: 048
     Dates: start: 20100120, end: 20100603
  3. ALBUTEROL [Concomitant]
     Dosage: 90 UG, INHALER 1-2 PUFFS EVERY 4-6 HOURS
     Route: 048
     Dates: start: 20100124
  4. LORATADINE [Concomitant]
     Dosage: 10 MG, DAILY
     Route: 048
     Dates: start: 20100124
  5. ZANAFLEX [Concomitant]
     Dosage: 8 MG, 3X/DAY
     Route: 048
     Dates: start: 20100124, end: 20100209
  6. DILANTIN [Suspect]
     Dosage: UNK
     Route: 048
     Dates: start: 20100225, end: 20100303
  7. MIDRIN [Concomitant]
     Indication: HEADACHE
     Dosage: TWO CAPSULES
     Route: 048
     Dates: start: 20100120, end: 20100603
  8. IRON [Concomitant]
     Dosage: 325 MG, 3X/DAY
     Route: 048
     Dates: start: 20100124
  9. CLONIDINE [Concomitant]
     Indication: BLOOD PRESSURE
     Dosage: 0.1 MG, 3X/DAY
     Route: 048
     Dates: start: 20100211, end: 20100225
  10. DILANTIN [Suspect]
     Indication: CONVULSION PROPHYLAXIS
     Dosage: 100 MG, 3X/DAY
     Route: 048
     Dates: start: 20100205
  11. DILANTIN [Suspect]
     Dosage: 100MG IN THE MORNING AND 400MG IN THE EVENING
     Route: 048
     Dates: start: 20100211
  12. CELEXA [Concomitant]
     Dosage: 40MG, ONE TABLET EVERY DAY
     Route: 048
     Dates: start: 20100120, end: 20100603
  13. CARDIZEM [Concomitant]
     Dosage: 240 MG, 2X/DAY
     Route: 048
     Dates: start: 20100206
  14. PROCARDIA XL [Concomitant]
     Dosage: 90 MG, DAILY
     Route: 048
     Dates: start: 20100211
  15. HYDROCHLOROTHIAZIDE [Concomitant]
     Dosage: 25 MG, UNK
     Route: 048
     Dates: start: 20100124, end: 20100224
  16. LASIX [Concomitant]
     Indication: SWELLING
     Dosage: 20 MG, UNK
     Route: 048
     Dates: start: 20100124
  17. SOMA [Concomitant]
     Dosage: 350 MG, NIGHT TIME
     Route: 048
     Dates: start: 20100211
  18. FLOVENT [Concomitant]
     Dosage: 220 UG, 2X/DAY, INHALER
     Route: 048
     Dates: start: 20100124
  19. ATENOLOL [Concomitant]
     Dosage: 50MG, DAILY
     Dates: start: 20100208
  20. METHADONE [Concomitant]
     Dosage: 10 MG, 4X/DAY
     Route: 048
     Dates: start: 20100124, end: 20100208
  21. METHADONE [Concomitant]
     Dosage: 10 MG, 2X/DAY
     Route: 048
     Dates: start: 20100209, end: 20100224
  22. AVAPRO [Concomitant]
     Dosage: 300 MG, UNK
     Route: 048
     Dates: start: 20100124
  23. HYDRALAZINE [Concomitant]
     Indication: BLOOD PRESSURE
     Dosage: 100 MG, 3X/DAY
     Route: 048
     Dates: start: 20100211, end: 20100225
  24. PROMETHAZINE [Concomitant]
     Dosage: 25 MG, SUPPOSITORY UNWRAP AND 11 SUPPOSITORY
     Route: 054
     Dates: start: 20100222, end: 20100225
  25. NEXIUM [Concomitant]
     Indication: REFLUX LARYNGITIS
     Dosage: 40 MG, 2X/DAY
     Route: 048
     Dates: start: 20100120, end: 20100603
  26. CATAPRES-TTS-1 [Concomitant]
     Dosage: 0.2 MG, WEEKLY
     Route: 062
     Dates: start: 20100124, end: 20100224

REACTIONS (1)
  - STEVENS-JOHNSON SYNDROME [None]
